FAERS Safety Report 17583099 (Version 7)
Quarter: 2025Q4

REPORT INFORMATION
  Report Type: Spontaneous
  Country: EU (occurrence: EU)
  Receive Date: 20200325
  Receipt Date: 20251013
  Transmission Date: 20260118
  Serious: Yes (Death, Life-Threatening, Hospitalization, Congenital Anomaly, Other)
  Sender: AUROBINDO
  Company Number: EU-ASTRAZENECA-2019SF35178

PATIENT
  Age: 30 Week
  Sex: Female
  Weight: 1.13 kg

DRUGS (5)
  1. ROSUVASTATIN [Suspect]
     Active Substance: ROSUVASTATIN
     Indication: Product used for unknown indication
     Dosage: UNK
     Route: 064
  2. ROSUVASTATIN [Suspect]
     Active Substance: ROSUVASTATIN
     Indication: Foetal exposure during pregnancy
  3. ROSUVASTATIN [Suspect]
     Active Substance: ROSUVASTATIN
     Indication: Product used for unknown indication
     Dosage: UNK
     Route: 048
  4. IBUPROFEN [Suspect]
     Active Substance: IBUPROFEN
     Indication: Product used for unknown indication
     Dosage: UNK
     Route: 064
  5. IBUPROFEN [Suspect]
     Active Substance: IBUPROFEN
     Indication: Foetal exposure during pregnancy

REACTIONS (18)
  - Cardiovascular insufficiency [Fatal]
  - Anuria [Fatal]
  - Neonatal asphyxia [Fatal]
  - Respiratory failure [Fatal]
  - Foetal exposure during pregnancy [Recovered/Resolved]
  - Exposure during pregnancy [Fatal]
  - Foetal heart rate deceleration abnormality [Fatal]
  - Foetal acidosis [Fatal]
  - Respiratory distress [Fatal]
  - Premature baby [Unknown]
  - Acute kidney injury [Recovered/Resolved]
  - Fatigue [Unknown]
  - Jaundice [Unknown]
  - Oligohydramnios [Recovered/Resolved]
  - Body mass index decreased [Unknown]
  - Anaemia [Unknown]
  - Hypertransaminasaemia [Unknown]
  - Laboratory test abnormal [Unknown]
